FAERS Safety Report 11750529 (Version 4)
Quarter: 2015Q4

REPORT INFORMATION
  Report Type: Spontaneous
  Country: US (occurrence: US)
  Receive Date: 20151118
  Receipt Date: 20151205
  Transmission Date: 20160304
  Serious: No
  Sender: FDA-Public Use
  Company Number: US-TEVA-610383USA

PATIENT
  Age: 60 Year
  Sex: Female

DRUGS (2)
  1. ENJUVIA [Suspect]
     Active Substance: ESTROGENS, CONJUGATED SYNTHETIC B
     Indication: HOT FLUSH
     Dosage: .6 MILLIGRAM DAILY;
  2. ENJUVIA [Suspect]
     Active Substance: ESTROGENS, CONJUGATED SYNTHETIC B
     Indication: INSOMNIA

REACTIONS (6)
  - Insomnia [Not Recovered/Not Resolved]
  - Product quality issue [Unknown]
  - Hot flush [Not Recovered/Not Resolved]
  - Drug ineffective [Unknown]
  - Hyperhidrosis [Unknown]
  - Restlessness [Unknown]

NARRATIVE: CASE EVENT DATE: 20151113
